FAERS Safety Report 7783300-7 (Version None)
Quarter: 2011Q3

REPORT INFORMATION
  Report Type: 
  Country: None (occurrence: None)
  Receive Date: 20110927
  Receipt Date: 20110927
  Transmission Date: 20111222
  Serious: No
  Sender: FDA-Public Use
  Company Number: None

PATIENT
  Age: 73 Year
  Sex: Male
  Weight: 78.2 kg

DRUGS (1)
  1. IBUPROFEN [Suspect]
     Dosage: 600 MG OTHER PO
     Route: 048
     Dates: start: 20110712, end: 20110714

REACTIONS (4)
  - SWELLING [None]
  - ANAPHYLACTIC REACTION [None]
  - RASH [None]
  - STEVENS-JOHNSON SYNDROME [None]
